FAERS Safety Report 9819981 (Version 1)
Quarter: 2013Q3

REPORT INFORMATION
  Report Type: Spontaneous
  Country: US (occurrence: None)
  Receive Date: 20130924
  Receipt Date: 20130924
  Transmission Date: 20140515
  Serious: Yes (Other)
  Sender: FDA-Public Use
  Company Number: 2013000204

PATIENT
  Age: 57 Year
  Sex: Female
  Weight: 73.9 kg

DRUGS (4)
  1. OSPHENA [Suspect]
     Indication: DYSPAREUNIA
     Dates: start: 20130607, end: 20130611
  2. LAMICTAL (LAMOTRIGINE) [Concomitant]
  3. VALTREX (VALACICLOVIR HYDROCHLORIDE) [Concomitant]
  4. AMBIEM (ZOLPIDEM TARTRATE) [Concomitant]

REACTIONS (2)
  - Rash [None]
  - Skin burning sensation [None]
